FAERS Safety Report 5319250-5 (Version None)
Quarter: 2007Q1

REPORT INFORMATION
  Report Type: 
  Country: None (occurrence: None)
  Receive Date: 20070202
  Receipt Date: 20061004
  Transmission Date: 20070707
  Serious: Yes (Other)
  Sender: FDA-Public Use
  Company Number: 256739

PATIENT
  Age: 39 Year
  Sex: Female
  Weight: 61.7 kg

DRUGS (3)
  1. NOVOLOG [Suspect]
     Indication: DIABETES MELLITUS INSULIN-DEPENDENT
     Dosage: UP TO 20 IU, QD, SUBCUTANEOUS
     Route: 058
     Dates: start: 20040101
  2. HUMULIN N /00030504/ (INSULIN INJECTION, ISOPHANE) [Concomitant]
  3. SYNTHROID [Concomitant]

REACTIONS (2)
  - DIZZINESS [None]
  - HYPOGLYCAEMIA [None]
